FAERS Safety Report 8121341-0 (Version None)
Quarter: 2012Q1

REPORT INFORMATION
  Report Type: 
  Country: None (occurrence: None)
  Receive Date: 20120208
  Receipt Date: 20120131
  Transmission Date: 20120608
  Serious: Yes (Other)
  Sender: FDA-Public Use
  Company Number: US-US-EMD SERONO, INC.-7110700

PATIENT
  Sex: Female

DRUGS (3)
  1. REBIF [Suspect]
     Indication: PRODUCT USED FOR UNKNOWN INDICATION
     Route: 058
     Dates: start: 20111116
  2. REBIF [Suspect]
     Route: 058
     Dates: start: 20120101
  3. OXYGEN [Concomitant]
     Dates: start: 20060101

REACTIONS (6)
  - OEDEMA PERIPHERAL [None]
  - ANAEMIA [None]
  - CATARACT [None]
  - INFLUENZA LIKE ILLNESS [None]
  - PAIN [None]
  - EPISTAXIS [None]
